APPROVED DRUG PRODUCT: WYMOX
Active Ingredient: AMOXICILLIN
Strength: 250MG
Dosage Form/Route: CAPSULE;ORAL
Application: A062120 | Product #001
Applicant: WYETH AYERST LABORATORIES
Approved: Approved Prior to Jan 1, 1982 | RLD: No | RS: No | Type: DISCN